FAERS Safety Report 8234758-0 (Version None)
Quarter: 2012Q1

REPORT INFORMATION
  Report Type: 
  Country: None (occurrence: None)
  Receive Date: 20120326
  Receipt Date: 20120323
  Transmission Date: 20120608
  Serious: Yes (Other)
  Sender: FDA-Public Use
  Company Number: DE-BAYER-2012-028842

PATIENT
  Age: 78 Year
  Sex: Male

DRUGS (3)
  1. LEVITRA [Suspect]
     Indication: PRODUCT USED FOR UNKNOWN INDICATION
     Dosage: LOW FREQUENCY AS NEEDED
     Route: 048
     Dates: start: 20110301
  2. LATANOPROST [Concomitant]
     Indication: GLAUCOMA
     Route: 047
  3. BRIMONIDINE TARTRATE [Concomitant]
     Indication: GLAUCOMA
     Route: 047

REACTIONS (1)
  - GLAUCOMA [None]
